FAERS Safety Report 5410087-5 (Version None)
Quarter: 2007Q3

REPORT INFORMATION
  Report Type: 
  Country: None (occurrence: None)
  Receive Date: 20070809
  Receipt Date: 20070731
  Transmission Date: 20080115
  Serious: Yes (Hospitalization)
  Sender: FDA-Public Use
  Company Number: ES-AMGEN-US217377

PATIENT
  Age: 52 Year
  Sex: Male

DRUGS (2)
  1. ENBREL [Suspect]
     Indication: PSORIASIS
     Route: 058
     Dates: start: 20070124, end: 20070215
  2. ENBREL [Suspect]
     Route: 058
     Dates: start: 20070101, end: 20070215

REACTIONS (5)
  - ABASIA [None]
  - BRONCHOPNEUMONIA [None]
  - CYTOMEGALOVIRUS INFECTION [None]
  - LEUKOCYTOSIS [None]
  - RESPIRATORY FAILURE [None]
